FAERS Safety Report 4816593-6 (Version None)
Quarter: 2005Q4

REPORT INFORMATION
  Report Type: 
  Country: None (occurrence: None)
  Receive Date: 20051028
  Receipt Date: 20051002
  Transmission Date: 20060501
  Serious: Yes (Hospitalization)
  Sender: FDA-Public Use
  Company Number: 235031K05USA

PATIENT
  Age: 57 Year
  Sex: Female

DRUGS (5)
  1. REBIF [Suspect]
     Indication: MULTIPLE SCLEROSIS
     Dosage: 44 MCG, 3 IN 1 WEEKS, SUBCUTANEOUS
     Route: 058
     Dates: start: 20040727
  2. WELLBUTRIN [Concomitant]
  3. KLONOPIN [Concomitant]
  4. REMERON [Concomitant]
  5. SEROQUEL [Concomitant]

REACTIONS (7)
  - ANXIETY [None]
  - ASTHENIA [None]
  - CONDITION AGGRAVATED [None]
  - GALLBLADDER DISORDER [None]
  - INJECTION SITE PAIN [None]
  - PAIN IN EXTREMITY [None]
  - PANIC ATTACK [None]
